FAERS Safety Report 16287652 (Version 2)
Quarter: 2020Q2

REPORT INFORMATION
  Report Type: Spontaneous
  Country: US (occurrence: US)
  Receive Date: 20190508
  Receipt Date: 20200414
  Transmission Date: 20200713
  Serious: Yes (Hospitalization, Other)
  Sender: FDA-Public Use
  Company Number: US-ASTRAZENECA-2019SE63036

PATIENT
  Sex: Male
  Weight: 114.8 kg

DRUGS (39)
  1. PRILOSEC [Suspect]
     Active Substance: OMEPRAZOLE MAGNESIUM
     Indication: GASTROOESOPHAGEAL REFLUX DISEASE
     Dosage: OMEPRAZOLE
     Route: 065
     Dates: start: 20131115
  2. PROTONIX [Suspect]
     Active Substance: PANTOPRAZOLE SODIUM
     Dosage: GENERIC- PANTOPRAZOLE SODIUM
     Route: 065
     Dates: start: 20160816
  3. FLUOXETINE [Concomitant]
     Active Substance: FLUOXETINE HYDROCHLORIDE
  4. PRILOSEC [Suspect]
     Active Substance: OMEPRAZOLE MAGNESIUM
     Indication: GASTROOESOPHAGEAL REFLUX DISEASE
     Route: 048
     Dates: start: 20140124, end: 20150802
  5. FUROSEMIDE. [Concomitant]
     Active Substance: FUROSEMIDE
     Indication: DIURETIC THERAPY
     Dates: start: 201912
  6. OXYCODONE [Concomitant]
     Active Substance: OXYCODONE
  7. CRESTOR [Concomitant]
     Active Substance: ROSUVASTATIN CALCIUM
  8. ENALAPRIL [Concomitant]
     Active Substance: ENALAPRIL
  9. XALATAN [Concomitant]
     Active Substance: LATANOPROST
  10. DESIPRAMINE HYDROCHLORIDE. [Concomitant]
     Active Substance: DESIPRAMINE HYDROCHLORIDE
  11. PREVACID [Suspect]
     Active Substance: LANSOPRAZOLE
     Indication: GASTROOESOPHAGEAL REFLUX DISEASE
     Route: 065
     Dates: start: 20080806, end: 20090830
  12. PREVACID [Suspect]
     Active Substance: LANSOPRAZOLE
     Indication: GASTROOESOPHAGEAL REFLUX DISEASE
     Route: 065
     Dates: start: 20080806
  13. PROTONIX [Suspect]
     Active Substance: PANTOPRAZOLE SODIUM
     Route: 065
  14. PROTONIX [Suspect]
     Active Substance: PANTOPRAZOLE SODIUM
     Indication: GASTROOESOPHAGEAL REFLUX DISEASE
     Route: 065
     Dates: start: 20160203, end: 20160204
  15. CALCITRIOL. [Concomitant]
     Active Substance: CALCITRIOL
     Indication: END STAGE RENAL DISEASE
     Dates: start: 201912
  16. ASPIRIN. [Concomitant]
     Active Substance: ASPIRIN
     Indication: PAIN
     Dates: start: 201311, end: 201609
  17. FLUCONAZOLE. [Concomitant]
     Active Substance: FLUCONAZOLE
  18. LISINOPRIL. [Concomitant]
     Active Substance: LISINOPRIL
  19. LATANOPROST. [Concomitant]
     Active Substance: LATANOPROST
  20. PREVACID 24 HR [Suspect]
     Active Substance: LANSOPRAZOLE
     Indication: GASTROOESOPHAGEAL REFLUX DISEASE
     Route: 065
     Dates: start: 20120101
  21. HYDRALAZINE [Concomitant]
     Active Substance: HYDRALAZINE HYDROCHLORIDE
     Indication: HYPERTENSION
     Dates: start: 201912
  22. METOPROLOL. [Concomitant]
     Active Substance: METOPROLOL
     Indication: HYPERTENSION
     Dates: start: 201912
  23. CHLORTHALIDONE. [Concomitant]
     Active Substance: CHLORTHALIDONE
  24. BYSTOLIC [Concomitant]
     Active Substance: NEBIVOLOL HYDROCHLORIDE
  25. PRILOSEC [Suspect]
     Active Substance: OMEPRAZOLE MAGNESIUM
     Indication: GASTROOESOPHAGEAL REFLUX DISEASE
     Route: 048
     Dates: start: 20140124
  26. PRILOSEC OTC [Suspect]
     Active Substance: OMEPRAZOLE MAGNESIUM
     Indication: GASTROOESOPHAGEAL REFLUX DISEASE
     Route: 048
     Dates: start: 20120101
  27. ALPRAZOLAM. [Concomitant]
     Active Substance: ALPRAZOLAM
  28. HUMALOG [Concomitant]
     Active Substance: INSULIN LISPRO
  29. FOLIC ACID. [Concomitant]
     Active Substance: FOLIC ACID
  30. ALPRAZOLAM. [Concomitant]
     Active Substance: ALPRAZOLAM
  31. BUSPIRONE [Concomitant]
     Active Substance: BUSPIRONE HYDROCHLORIDE
  32. GABAPENTIN. [Concomitant]
     Active Substance: GABAPENTIN
  33. VALSARTAN. [Concomitant]
     Active Substance: VALSARTAN
  34. HYDROCHLOROTHIAZIDE. [Concomitant]
     Active Substance: HYDROCHLOROTHIAZIDE
  35. SPIRONOLACTONE. [Concomitant]
     Active Substance: SPIRONOLACTONE
  36. ATORVASTATIN [Concomitant]
     Active Substance: ATORVASTATIN
     Indication: BLOOD CHOLESTEROL INCREASED
     Dates: start: 201311
  37. AMLODIPINE [Concomitant]
     Active Substance: AMLODIPINE BESYLATE
     Indication: HYPERTENSION
     Dates: start: 201401
  38. BENADRYL [Concomitant]
     Active Substance: DIPHENHYDRAMINE HYDROCHLORIDE
     Indication: PRURITUS
     Dates: start: 202001
  39. PEPCID AC [Concomitant]
     Active Substance: FAMOTIDINE
     Dosage: (OTC)
     Dates: start: 201508

REACTIONS (4)
  - Acute kidney injury [Not Recovered/Not Resolved]
  - Chronic kidney disease [Not Recovered/Not Resolved]
  - End stage renal disease [Not Recovered/Not Resolved]
  - Condition aggravated [Not Recovered/Not Resolved]
